FAERS Safety Report 4979560-8 (Version None)
Quarter: 2006Q2

REPORT INFORMATION
  Report Type: 
  Country: None (occurrence: None)
  Receive Date: 20060421
  Receipt Date: 20060412
  Transmission Date: 20061013
  Serious: Yes (Other)
  Sender: FDA-Public Use
  Company Number: AT-ROCHE-444154

PATIENT
  Sex: Female

DRUGS (1)
  1. RIVOTRIL [Suspect]
     Route: 065

REACTIONS (3)
  - CELL DEATH [None]
  - COORDINATION ABNORMAL [None]
  - NERVOUS SYSTEM DISORDER [None]
